FAERS Safety Report 5045884-1 (Version None)
Quarter: 2006Q2

REPORT INFORMATION
  Report Type: 
  Country: None (occurrence: None)
  Receive Date: 20060629
  Receipt Date: 20060616
  Transmission Date: 20061013
  Serious: Yes (Hospitalization, Other)
  Sender: FDA-Public Use
  Company Number: 2006076764

PATIENT
  Age: 54 Year
  Sex: Female
  Weight: 51.2565 kg

DRUGS (2)
  1. ZYVOX [Suspect]
     Indication: COUGH
     Dosage: 1200 MG (600 MG, 2 IN 1 D), INTRAVENOUS
     Route: 042
     Dates: start: 20051107, end: 20051229
  2. ZYVOX [Suspect]
     Indication: SINUSITIS
     Dosage: 1200 MG (600 MG, 2 IN 1 D), INTRAVENOUS
     Route: 042
     Dates: start: 20051107, end: 20051229

REACTIONS (13)
  - ANAEMIA [None]
  - ASTHENIA [None]
  - DYSSTASIA [None]
  - HEPATIC ENZYME INCREASED [None]
  - INJECTION SITE THROMBOSIS [None]
  - MALAISE [None]
  - MUSCLE SPASTICITY [None]
  - NAUSEA [None]
  - NERVE INJURY [None]
  - NEUROPATHY [None]
  - OEDEMA PERIPHERAL [None]
  - PAIN [None]
  - PNEUMONIA [None]
